FAERS Safety Report 5259680-3 (Version None)
Quarter: 2007Q1

REPORT INFORMATION
  Report Type: 
  Country: None (occurrence: None)
  Receive Date: 20070309
  Receipt Date: 20070226
  Transmission Date: 20070707
  Serious: Yes (Hospitalization)
  Sender: FDA-Public Use
  Company Number: HQWYE424402MAR07

PATIENT
  Age: 28 Year
  Sex: Male

DRUGS (4)
  1. TAZOCIN [Suspect]
     Indication: MORGANELLA INFECTION
     Dosage: UNKNOWN
  2. TAZOCIN [Suspect]
     Indication: PNEUMONIA
  3. CIPROFLOXACIN [Concomitant]
     Dosage: UNKNOWN
  4. TEICOPLANIN [Concomitant]
     Dosage: UNKNOWN

REACTIONS (1)
  - SEPTIC SHOCK [None]
